FAERS Safety Report 17582850 (Version 1)
Quarter: 2020Q1

REPORT INFORMATION
  Report Type: Report from Study
  Country: US (occurrence: US)
  Receive Date: 20200325
  Receipt Date: 20200325
  Transmission Date: 20200409
  Serious: No
  Sender: FDA-Public Use
  Company Number: US-INCYTE CORPORATION-2020IN001731

PATIENT

DRUGS (1)
  1. JAKAFI [Suspect]
     Active Substance: RUXOLITINIB
     Indication: POLYCYTHAEMIA VERA
     Route: 065

REACTIONS (9)
  - Disturbance in attention [Unknown]
  - Decreased activity [Unknown]
  - Asthenia [Recovering/Resolving]
  - Apathy [Unknown]
  - Feeling abnormal [Unknown]
  - Iron deficiency [Unknown]
  - Fatigue [Unknown]
  - Stress [Unknown]
  - Weight decreased [Unknown]
